FAERS Safety Report 5309091-7 (Version None)
Quarter: 2007Q2

REPORT INFORMATION
  Report Type: 
  Country: None (occurrence: None)
  Receive Date: 20070426
  Receipt Date: 20070419
  Transmission Date: 20071010
  Serious: Yes (Hospitalization, Other)
  Sender: FDA-Public Use
  Company Number: US-MERCK-0704USA04286

PATIENT
  Age: 50 Year
  Sex: Female

DRUGS (1)
  1. FOSAMAX [Suspect]
     Indication: OSTEOPOROSIS
     Route: 048

REACTIONS (6)
  - ADVERSE EVENT [None]
  - BONE FORMATION INCREASED [None]
  - BONE MARROW DISORDER [None]
  - FIBULA FRACTURE [None]
  - IMPAIRED HEALING [None]
  - WRIST FRACTURE [None]
